FAERS Safety Report 9336790 (Version 1)
Quarter: 2013Q2

REPORT INFORMATION
  Report Type: Spontaneous
  Country: DK (occurrence: GB)
  Receive Date: 20130607
  Receipt Date: 20130607
  Transmission Date: 20140414
  Serious: Yes (Disabling)
  Sender: FDA-Public Use
  Company Number: GB-FRI-1000045728

PATIENT
  Age: 79 Year
  Sex: 0

DRUGS (7)
  1. CITALOPRAM [Suspect]
     Indication: DEPRESSION
     Dosage: 30 MG
     Route: 048
     Dates: start: 201301, end: 20130227
  2. CITALOPRAM [Suspect]
     Dosage: 20 MG
     Route: 048
     Dates: start: 20130227
  3. BISOPROLOL [Concomitant]
     Indication: HYPERTENSION
     Dosage: 2.5 MG
     Route: 048
  4. OMEPRAZOLE [Concomitant]
     Dosage: 20 MG
     Route: 048
     Dates: start: 201301
  5. RAMIPRIL [Concomitant]
     Indication: HYPERTENSION
     Dosage: 5 MG
     Route: 048
     Dates: start: 201212
  6. SIMVASTATIN [Concomitant]
     Dosage: 10 MG
     Route: 048
     Dates: start: 201106
  7. ZOPICLONE [Concomitant]
     Indication: INSOMNIA
     Dosage: 3.75 MG
     Route: 048
     Dates: start: 201301

REACTIONS (4)
  - Ataxia [Recovered/Resolved]
  - Movement disorder [Recovered/Resolved]
  - Balance disorder [Recovered/Resolved]
  - Prescribed overdose [Recovered/Resolved]
